FAERS Safety Report 5153426-5 (Version None)
Quarter: 2006Q4

REPORT INFORMATION
  Report Type: 
  Country: None (occurrence: None)
  Receive Date: 20061114
  Receipt Date: 20061030
  Transmission Date: 20070319
  Serious: Yes (Life-Threatening, Hospitalization)
  Sender: FDA-Public Use
  Company Number: SP-2006-003317

PATIENT
  Age: 67 Year
  Sex: Female
  Weight: 75 kg

DRUGS (9)
  1. OLMETEC [Suspect]
     Indication: HYPERTENSION
  2. SPIRONOLACTONE [Concomitant]
  3. FUROSEMIDE [Concomitant]
  4. PERINDOPRIL ERBUMINE [Concomitant]
  5. DAONIL [Concomitant]
  6. AMLOR [Concomitant]
  7. CRESTOR [Concomitant]
  8. ACARBOSE [Concomitant]
  9. METFORMIN [Concomitant]

REACTIONS (5)
  - ASTHENIA [None]
  - ATRIOVENTRICULAR BLOCK THIRD DEGREE [None]
  - ELECTROCARDIOGRAM ABNORMAL [None]
  - HYPERKALAEMIA [None]
  - MALAISE [None]
